FAERS Safety Report 7326531-2 (Version None)
Quarter: 2011Q1

REPORT INFORMATION
  Report Type: 
  Country: None (occurrence: None)
  Receive Date: 20110302
  Receipt Date: 20110216
  Transmission Date: 20110831
  Serious: Yes (Hospitalization, Other)
  Sender: FDA-Public Use
  Company Number: US-BAYER-201029283NA

PATIENT
  Sex: Female
  Weight: 52.4 kg

DRUGS (7)
  1. YAZ [Suspect]
     Indication: PREMENSTRUAL SYNDROME
     Route: 048
     Dates: start: 20070701, end: 20080601
  2. LEXAPRO [Concomitant]
     Indication: DEPRESSION
  3. XANAX [Concomitant]
     Indication: STRESS
  4. YAZ [Suspect]
     Dosage: UNK
     Dates: start: 20030101, end: 20040101
  5. YAZ [Suspect]
  6. YASMIN [Suspect]
     Indication: PREMENSTRUAL SYNDROME
     Route: 048
     Dates: start: 20070701, end: 20080601
  7. YASMIN [Suspect]
     Dosage: UNK
     Dates: start: 20030101, end: 20040101

REACTIONS (7)
  - PULMONARY HYPERTENSION [None]
  - PULMONARY EMBOLISM [None]
  - DYSPNOEA [None]
  - CHEST PAIN [None]
  - PAIN [None]
  - LUNG INFILTRATION [None]
  - PNEUMONIA [None]
